FAERS Safety Report 7075652-0 (Version None)
Quarter: 2010Q4

REPORT INFORMATION
  Report Type: 
  Country: None (occurrence: None)
  Receive Date: 20101030
  Receipt Date: 20101021
  Transmission Date: 20110411
  Serious: No
  Sender: FDA-Public Use
  Company Number: US-WYE-H18293010

PATIENT
  Age: 74 Year
  Sex: Male
  Weight: 99.88 kg

DRUGS (6)
  1. ALAVERT D-12 [Suspect]
     Indication: HYPERSENSITIVITY
     Route: 048
     Dates: start: 20100928, end: 20101006
  2. ALAVERT D-12 [Suspect]
     Dosage: UNKNOWN
     Route: 048
     Dates: start: 20100101, end: 20100101
  3. ALAVERT D-12 [Suspect]
     Route: 048
     Dates: start: 20101006, end: 20101013
  4. LOVASTATIN [Concomitant]
  5. VITAMINS [Concomitant]
  6. ZOLOFT [Concomitant]

REACTIONS (1)
  - FLATULENCE [None]
